FAERS Safety Report 25180476 (Version 1)
Quarter: 2025Q2

REPORT INFORMATION
  Report Type: Spontaneous
  Country: US (occurrence: US)
  Receive Date: 20250409
  Receipt Date: 20250409
  Transmission Date: 20250716
  Serious: No
  Sender: BOTANIX PHARMACEUTICALS
  Company Number: US-BOTANIX PHARMACEUTICALS-2025BOT00015

PATIENT
  Sex: Male

DRUGS (1)
  1. SOFDRA [Suspect]
     Active Substance: SOFPIRONIUM BROMIDE

REACTIONS (4)
  - Mydriasis [Recovered/Resolved]
  - Dry mouth [Recovered/Resolved]
  - Accidental exposure to product [Unknown]
  - Exposure via eye contact [Unknown]
